FAERS Safety Report 9403602 (Version 1)
Quarter: 2013Q3

REPORT INFORMATION
  Report Type: Spontaneous
  Country: US (occurrence: US)
  Receive Date: 20130717
  Receipt Date: 20130717
  Transmission Date: 20140515
  Serious: Yes (Other)
  Sender: FDA-Public Use
  Company Number: US-JNJFOC-20130702908

PATIENT
  Age: 35 Year
  Sex: Male
  Weight: 58.97 kg

DRUGS (3)
  1. PEPCID [Suspect]
     Indication: DYSPEPSIA
     Dosage: 1TAB AT 7:30AM AND ANOTHER 1 AT 12:30NN DURING THE TIME OF EVENT; USUALLY TAKE THE PRODUCT OD PRN
     Route: 048
     Dates: start: 20130703, end: 20130703
  2. PEPCID [Suspect]
     Indication: DYSPEPSIA
     Dosage: AS NEEDED
     Route: 048
     Dates: start: 20120703, end: 20130703
  3. IBUPROFEN [Suspect]
     Indication: HEADACHE
     Route: 065
     Dates: start: 20130703

REACTIONS (2)
  - Dyspnoea [Not Recovered/Not Resolved]
  - Accidental overdose [Not Recovered/Not Resolved]
